FAERS Safety Report 14994685 (Version 4)
Quarter: 2019Q1

REPORT INFORMATION
  Report Type: Spontaneous
  Country: DE (occurrence: DE)
  Receive Date: 20180611
  Receipt Date: 20190225
  Transmission Date: 20190417
  Serious: Yes (Hospitalization)
  Sender: FDA-Public Use
  Company Number: PHHY2018DE018843

PATIENT
  Age: 67 Year
  Sex: Female
  Weight: 50 kg

DRUGS (27)
  1. BEVACIZUMAB. [Suspect]
     Active Substance: BEVACIZUMAB
     Dosage: 675 MG, UNK
     Route: 042
     Dates: start: 20120327
  2. TRIAMTEREN [Concomitant]
     Active Substance: TRIAMTERENE
     Indication: PRODUCT USED FOR UNKNOWN INDICATION
     Dosage: UNK
     Route: 065
  3. CAPECITABINE. [Suspect]
     Active Substance: CAPECITABINE
     Dosage: RECEIVED SUBSEQUENT DOSE AT 24/JAN/2012.
     Route: 065
  4. BEVACIZUMAB. [Suspect]
     Active Substance: BEVACIZUMAB
     Dosage: 462.5 MG, UNK
     Route: 042
     Dates: start: 20120605, end: 20120703
  5. CAPECITABINE. [Suspect]
     Active Substance: CAPECITABINE
     Dosage: SUBSEQUENT DOSE ON 03/JAN/2012
     Route: 065
  6. BEVACIZUMAB. [Suspect]
     Active Substance: BEVACIZUMAB
     Dosage: 425 MG, Q2W
     Route: 042
     Dates: start: 20120807
  7. PACLITAXEL. [Suspect]
     Active Substance: PACLITAXEL
     Indication: BREAST CANCER
     Dosage: 129 MG, UNK
     Route: 042
     Dates: start: 20120619
  8. PACLITAXEL. [Suspect]
     Active Substance: PACLITAXEL
     Dosage: 129 MG, UNK
     Route: 042
     Dates: start: 20120717
  9. PACLITAXEL. [Suspect]
     Active Substance: PACLITAXEL
     Dosage: 129 MG, UNK
     Route: 042
     Dates: start: 20120828
  10. CAPECITABINE. [Suspect]
     Active Substance: CAPECITABINE
     Dosage: 1900 MG/M2, UNK
     Route: 065
     Dates: start: 20111213, end: 20121124
  11. CAPECITABINE. [Suspect]
     Active Substance: CAPECITABINE
     Dosage: 1900 MG/M2, UNK
     Route: 065
     Dates: start: 20120103
  12. HCTZ [Concomitant]
     Active Substance: HYDROCHLOROTHIAZIDE
     Indication: PRODUCT USED FOR UNKNOWN INDICATION
     Dosage: 1 OT, QD
     Route: 065
  13. PACLITAXEL. [Suspect]
     Active Substance: PACLITAXEL
     Dosage: SUBSEQUENT DOSES WERE RECEIVED ON 19/JUN/2012, 03/JUL/2012, 17/JUL/2012, 07/AUG/2012, 28/AUG/2012, 1
     Route: 042
  14. XELODA [Suspect]
     Active Substance: CAPECITABINE
     Indication: BREAST CANCER
     Dosage: 2500 MG/M2, UNK
     Route: 065
     Dates: start: 20111122, end: 20120306
  15. BEVACIZUMAB. [Suspect]
     Active Substance: BEVACIZUMAB
     Dosage: 675 MG, UNK
     Route: 042
     Dates: start: 20120306, end: 20120417
  16. ENALAPRIL [Concomitant]
     Active Substance: ENALAPRIL
     Indication: PRODUCT USED FOR UNKNOWN INDICATION
     Dosage: 1 OT, QD
     Route: 065
  17. HYDROCHLOROTHIAZID [Concomitant]
     Active Substance: HYDROCHLOROTHIAZIDE
     Indication: PRODUCT USED FOR UNKNOWN INDICATION
     Dosage: 1 OT, QD
     Route: 065
  18. PACLITAXEL. [Suspect]
     Active Substance: PACLITAXEL
     Dosage: 129 MG, UNK
     Route: 042
     Dates: start: 20120703
  19. AVASTIN [Suspect]
     Active Substance: BEVACIZUMAB
     Dosage: 675 MG, Q3W
     Route: 042
     Dates: start: 20120306, end: 20120417
  20. AVASTIN [Suspect]
     Active Substance: BEVACIZUMAB
     Dosage: 425 MG, Q2W
     Route: 042
     Dates: start: 20120807
  21. PACLITAXEL. [Suspect]
     Active Substance: PACLITAXEL
     Dosage: 129 MG, UNK
     Route: 042
     Dates: start: 20120807
  22. CAPECITABINE. [Suspect]
     Active Substance: CAPECITABINE
     Indication: BREAST CANCER
     Dosage: 2500 MG/M2, UNK
     Route: 065
     Dates: start: 20111122, end: 20120306
  23. AVASTIN [Suspect]
     Active Substance: BEVACIZUMAB
     Indication: BREAST CANCER METASTATIC
     Dosage: 750 MG, Q3W
     Route: 042
     Dates: start: 20111213, end: 20120214
  24. AVASTIN [Suspect]
     Active Substance: BEVACIZUMAB
     Dosage: 462.5 MG, Q2W
     Route: 042
     Dates: start: 20120605, end: 20120703
  25. BEVACIZUMAB. [Suspect]
     Active Substance: BEVACIZUMAB
     Indication: BREAST CANCER METASTATIC
     Dosage: 750 MG, UNK
     Route: 042
     Dates: start: 20111213, end: 20120214
  26. BEVACIZUMAB. [Suspect]
     Active Substance: BEVACIZUMAB
     Dosage: 750 MG, UNK
     Route: 042
     Dates: start: 20120124
  27. PANTOPRAZOL [Concomitant]
     Active Substance: PANTOPRAZOLE SODIUM
     Indication: DYSPEPSIA
     Dosage: UNK
     Route: 065

REACTIONS (9)
  - Dry mouth [Unknown]
  - Musculoskeletal chest pain [Unknown]
  - Blood pressure increased [Unknown]
  - Epistaxis [Unknown]
  - Haemoglobin decreased [Recovered/Resolved]
  - Alanine aminotransferase abnormal [Unknown]
  - Dysgeusia [Unknown]
  - Chest pain [Unknown]
  - Decreased appetite [Recovered/Resolved]

NARRATIVE: CASE EVENT DATE: 20120124
